FAERS Safety Report 6199320-2 (Version None)
Quarter: 2009Q2

REPORT INFORMATION
  Report Type: 
  Country: None (occurrence: None)
  Receive Date: 20090519
  Receipt Date: 20090506
  Transmission Date: 20091009
  Serious: Yes (Other)
  Sender: FDA-Public Use
  Company Number: MX-1169511

PATIENT

DRUGS (1)
  1. BSS [Suspect]
     Indication: CATARACT OPERATION
     Dosage: 500 MG INTRAOCULAR
     Route: 031
     Dates: start: 20090428, end: 20090428

REACTIONS (2)
  - TOXIC ANTERIOR SEGMENT SYNDROME [None]
  - VISION BLURRED [None]
